FAERS Safety Report 5700280-6 (Version None)
Quarter: 2008Q2

REPORT INFORMATION
  Report Type: 
  Country: None (occurrence: None)
  Receive Date: 20080408
  Receipt Date: 20080408
  Transmission Date: 20081010
  Serious: Yes (Hospitalization)
  Sender: FDA-Public Use
  Company Number: None

PATIENT
  Sex: Female
  Weight: 45.2 kg

DRUGS (4)
  1. CISPLATIN [Suspect]
     Dosage: 101.2 MG
  2. AMIFOSTINE [Suspect]
     Dosage: 3000 MG
  3. CISPLATIN [Concomitant]
  4. FENTANYL CITRATE [Concomitant]

REACTIONS (5)
  - CERVIX CARCINOMA STAGE III [None]
  - HAEMOGLOBIN DECREASED [None]
  - PYELONEPHRITIS [None]
  - RENAL FAILURE ACUTE [None]
  - SYNCOPE [None]
